FAERS Safety Report 21418448 (Version 1)
Quarter: 2022Q4

REPORT INFORMATION
  Report Type: Spontaneous
  Country: US (occurrence: US)
  Receive Date: 20221006
  Receipt Date: 20221006
  Transmission Date: 20230113
  Serious: Yes (Hospitalization)
  Sender: FDA-Public Use
  Company Number: US-AMERICAN REGENT INC-2022002878

PATIENT
  Age: 21 Year
  Sex: Female
  Weight: 70.3 kg

DRUGS (3)
  1. VENOFER [Suspect]
     Active Substance: IRON SUCROSE
     Indication: Iron deficiency
     Dosage: 200 MILLIGRAM, 1 IN 1 M (FOR THE PAST 3-4 MONTHS)
  2. VENOFER [Suspect]
     Active Substance: IRON SUCROSE
     Indication: Anaemia postoperative
     Dosage: 1000 MILLIGRAM, SINGLE
  3. ALBUTEROL [Concomitant]
     Active Substance: ALBUTEROL
     Indication: Product used for unknown indication
     Dosage: UNK

REACTIONS (9)
  - Blood iron increased [Recovered/Resolved]
  - Accidental overdose [Unknown]
  - Musculoskeletal stiffness [Recovered/Resolved]
  - Paraesthesia [Recovered/Resolved]
  - Rash [Recovered/Resolved]
  - Back pain [Recovered/Resolved]
  - Oedema peripheral [Recovered/Resolved]
  - Abdominal pain [Recovered/Resolved]
  - Off label use [Unknown]
